FAERS Safety Report 6032687-4 (Version None)
Quarter: 2009Q1

REPORT INFORMATION
  Report Type: 
  Country: None (occurrence: None)
  Receive Date: 20090109
  Receipt Date: 20081231
  Transmission Date: 20090719
  Serious: Yes (Other)
  Sender: FDA-Public Use
  Company Number: US-PFIZER INC-2008151596

PATIENT
  Sex: Female

DRUGS (2)
  1. LYRICA [Suspect]
     Indication: NEUROPATHY PERIPHERAL
  2. LIPITOR [Suspect]

REACTIONS (7)
  - BALANCE DISORDER [None]
  - DYSSTASIA [None]
  - FALL [None]
  - HEAD INJURY [None]
  - NEUROPATHY PERIPHERAL [None]
  - VISION BLURRED [None]
  - WALKING DISABILITY [None]
